FAERS Safety Report 13998949 (Version 1)
Quarter: 2017Q3

REPORT INFORMATION
  Report Type: Spontaneous
  Country: US (occurrence: US)
  Receive Date: 20170922
  Receipt Date: 20170922
  Transmission Date: 20171128
  Serious: No
  Sender: FDA-Public Use
  Company Number: None

PATIENT
  Age: 32 Year
  Sex: Female
  Weight: 58.5 kg

DRUGS (2)
  1. DAILY ADULT OTC GUMMY VITAMIN [Concomitant]
  2. BACTRIM DS [Suspect]
     Active Substance: SULFAMETHOXAZOLE\TRIMETHOPRIM
     Indication: ALLERGY TO STING
     Dosage: ?          QUANTITY:20 TABLET(S);?
     Route: 048
     Dates: start: 20170817, end: 20170821

REACTIONS (15)
  - Cough [None]
  - Arthralgia [None]
  - Rash generalised [None]
  - Eye pain [None]
  - Parosmia [None]
  - Dyspnoea [None]
  - Pharyngeal oedema [None]
  - Ocular hyperaemia [None]
  - Insomnia [None]
  - Dysgeusia [None]
  - Headache [None]
  - Flushing [None]
  - Pyrexia [None]
  - Throat tightness [None]
  - Eye swelling [None]

NARRATIVE: CASE EVENT DATE: 20170922
